FAERS Safety Report 4715446-1 (Version None)
Quarter: 2005Q3

REPORT INFORMATION
  Report Type: 
  Country: None (occurrence: None)
  Receive Date: 20050715
  Receipt Date: 20050715
  Transmission Date: 20060218
  Serious: Yes (Other)
  Sender: FDA-Public Use
  Company Number: None

PATIENT
  Age: 68 Year
  Sex: Male
  Weight: 113.3993 kg

DRUGS (2)
  1. MINOCYCLINE CAP 100 MG [Suspect]
     Dosage: ONE TWICE A DAY
     Dates: start: 20050705
  2. MINOCYCLINE CAP 100 MG [Suspect]
     Dosage: ONE TWICE A DAY
     Dates: start: 20050706

REACTIONS (4)
  - DIZZINESS [None]
  - INSOMNIA [None]
  - STOMACH DISCOMFORT [None]
  - TREMOR [None]
